FAERS Safety Report 4910327-2 (Version None)
Quarter: 2006Q1

REPORT INFORMATION
  Report Type: 
  Country: None (occurrence: None)
  Receive Date: 20060213
  Receipt Date: 20050317
  Transmission Date: 20060701
  Serious: Yes (Hospitalization, Other)
  Sender: FDA-Public Use
  Company Number: US-MERCK-0503USA03403

PATIENT
  Age: 50 Year
  Sex: Male
  Weight: 91 kg

DRUGS (6)
  1. VIOXX [Suspect]
     Indication: SHOULDER PAIN
     Route: 048
     Dates: start: 19990101, end: 20040901
  2. GLUCOVANCE [Concomitant]
     Route: 065
  3. NIASPAN [Concomitant]
     Route: 065
  4. LOPRESSOR [Concomitant]
     Route: 065
  5. INSULIN [Concomitant]
     Route: 065
  6. LIPITOR [Concomitant]
     Route: 065

REACTIONS (53)
  - ADJUSTMENT DISORDER [None]
  - ALANINE AMINOTRANSFERASE INCREASED [None]
  - ANGINA PECTORIS [None]
  - ANGINA UNSTABLE [None]
  - APHASIA [None]
  - ASPARTATE AMINOTRANSFERASE INCREASED [None]
  - ATRIAL FIBRILLATION [None]
  - BACK PAIN [None]
  - BLOOD CHOLESTEROL INCREASED [None]
  - BLOOD CREATINE PHOSPHOKINASE INCREASED [None]
  - BLOOD GLUCOSE INCREASED [None]
  - BRONCHITIS [None]
  - CARDIAC FAILURE [None]
  - CEREBROVASCULAR ACCIDENT [None]
  - CHEST DISCOMFORT [None]
  - CHEST PAIN [None]
  - COAGULOPATHY [None]
  - CORONARY ARTERY DISEASE [None]
  - COUGH [None]
  - DIABETES MELLITUS [None]
  - DIABETES MELLITUS INADEQUATE CONTROL [None]
  - DIABETIC MICROANGIOPATHY [None]
  - DILATATION ATRIAL [None]
  - DISEASE RECURRENCE [None]
  - DIZZINESS [None]
  - DYSLIPIDAEMIA [None]
  - DYSPEPSIA [None]
  - DYSPNOEA [None]
  - FLANK PAIN [None]
  - GLUCOSE URINE PRESENT [None]
  - HEADACHE [None]
  - HEPATIC ENZYME INCREASED [None]
  - HYPERHIDROSIS [None]
  - INJURY [None]
  - MUSCLE SPASMS [None]
  - MUSCULOSKELETAL CHEST PAIN [None]
  - MYOCARDIAL INFARCTION [None]
  - MYOCARDIAL ISCHAEMIA [None]
  - NAUSEA [None]
  - NEUROPATHY PERIPHERAL [None]
  - PALPITATIONS [None]
  - PNEUMONIA [None]
  - RENAL FAILURE [None]
  - SINUS TACHYCARDIA [None]
  - THROMBOSIS [None]
  - TRICUSPID VALVE INCOMPETENCE [None]
  - ULCER [None]
  - UPPER RESPIRATORY TRACT INFECTION [None]
  - URINE KETONE BODY PRESENT [None]
  - VENTRICULAR HYPERTROPHY [None]
  - VENTRICULAR HYPOKINESIA [None]
  - VIRAL INFECTION [None]
  - VOMITING [None]
